FAERS Safety Report 9630909 (Version 2)
Quarter: 2013Q4

REPORT INFORMATION
  Report Type: Spontaneous
  Country: US (occurrence: US)
  Receive Date: 20131018
  Receipt Date: 20131202
  Transmission Date: 20140711
  Serious: Yes (Other)
  Sender: FDA-Public Use
  Company Number: US-PFIZER INC-2013299307

PATIENT
  Age: 53 Year
  Sex: Female
  Weight: 66.21 kg

DRUGS (6)
  1. CHANTIX [Suspect]
     Indication: SMOKING CESSATION THERAPY
     Dosage: 0.5 MG, DAILY
     Route: 048
     Dates: start: 2010, end: 20100504
  2. SYMBICORT [Concomitant]
     Indication: CHRONIC OBSTRUCTIVE PULMONARY DISEASE
     Dosage: ^160/4.5^, 2 PUFFS, 2X/DAY
  3. CALCIUM [Concomitant]
     Indication: SUPPLEMENTATION THERAPY
     Dosage: TWO TABLETS DAILY
  4. FISH OIL [Concomitant]
     Indication: SUPPLEMENTATION THERAPY
     Dosage: TWO CAPSULES DAILY
  5. DYAZIDE [Concomitant]
     Dosage: 1 DF, DAILY
  6. RANITIDINE [Concomitant]
     Dosage: 300 MG, DAILY

REACTIONS (1)
  - Ankle fracture [Unknown]
